FAERS Safety Report 16018416 (Version 1)
Quarter: 2019Q1

REPORT INFORMATION
  Report Type: Spontaneous
  Country: US (occurrence: US)
  Receive Date: 20190228
  Receipt Date: 20190228
  Transmission Date: 20190418
  Serious: No
  Sender: FDA-Public Use
  Company Number: US-TEVA-2019-US-1008302

PATIENT
  Sex: Female

DRUGS (1)
  1. CROMOLYN SODIUM TEVA [Suspect]
     Active Substance: CROMOLYN SODIUM
     Route: 065

REACTIONS (1)
  - Feeling abnormal [Unknown]
